FAERS Safety Report 10450584 (Version 3)
Quarter: 2015Q3

REPORT INFORMATION
  Report Type: Spontaneous
  Country: US (occurrence: US)
  Receive Date: 20140912
  Receipt Date: 20150828
  Transmission Date: 20151125
  Serious: Yes (Hospitalization)
  Sender: FDA-Public Use
  Company Number: US-ASTRAZENECA-2014SE66840

PATIENT
  Age: 77 Year
  Sex: Male
  Weight: 88.5 kg

DRUGS (8)
  1. LIPITOR [Concomitant]
     Active Substance: ATORVASTATIN CALCIUM
     Indication: BLOOD CHOLESTEROL INCREASED
     Dosage: 20 MG. DAILY
     Dates: start: 1998
  2. SYMBICORT [Suspect]
     Active Substance: BUDESONIDE\FORMOTEROL FUMARATE DIHYDRATE
     Indication: CHRONIC OBSTRUCTIVE PULMONARY DISEASE
     Dosage: 160 MCG, 2 PUFFS BID
     Route: 055
     Dates: start: 2014, end: 2014
  3. SPIRIVA [Concomitant]
     Active Substance: TIOTROPIUM BROMIDE MONOHYDRATE
  4. SYMBICORT [Suspect]
     Active Substance: BUDESONIDE\FORMOTEROL FUMARATE DIHYDRATE
     Indication: CHRONIC OBSTRUCTIVE PULMONARY DISEASE
     Dosage: 160 MCG, ONE PUFF ONCE DAILY
     Route: 055
     Dates: start: 2014
  5. GLIPIZIDE. [Concomitant]
     Active Substance: GLIPIZIDE
     Indication: BLOOD GLUCOSE ABNORMAL
     Dosage: 5 MG. DAILY
     Dates: start: 2004
  6. LOSARTAN POTASSIUM. [Concomitant]
     Active Substance: LOSARTAN POTASSIUM
     Dates: start: 2012
  7. METOPROLOL ER [Suspect]
     Active Substance: METOPROLOL SUCCINATE
     Indication: ATRIAL FIBRILLATION
     Dosage: 100 MG DAILY (NON AZ)
     Route: 048
     Dates: start: 201305
  8. DILT ER [Concomitant]
     Indication: CARDIAC DISORDER
     Dosage: 120 MG. NR
     Dates: start: 201305

REACTIONS (9)
  - Off label use [Not Recovered/Not Resolved]
  - Diabetes mellitus [Not Recovered/Not Resolved]
  - Cough [Unknown]
  - Lung neoplasm malignant [Unknown]
  - Chronic obstructive pulmonary disease [Not Recovered/Not Resolved]
  - Aphonia [Recovered/Resolved]
  - Cerebrovascular accident [Not Recovered/Not Resolved]
  - Mental disorder due to a general medical condition [Not Recovered/Not Resolved]
  - Abnormal behaviour [Unknown]

NARRATIVE: CASE EVENT DATE: 20130704
